FAERS Safety Report 9249854 (Version 1)
Quarter: 2013Q2

REPORT INFORMATION
  Report Type: Spontaneous
  Country: US (occurrence: US)
  Receive Date: 20130423
  Receipt Date: 20130423
  Transmission Date: 20140414
  Serious: No
  Sender: FDA-Public Use
  Company Number: US-009507513-1304USA013360

PATIENT
  Age: 36 Year
  Sex: Male

DRUGS (1)
  1. CLARITIN [Suspect]
     Indication: SEASONAL ALLERGY
     Dosage: 10 MG, Q12H
     Route: 048
     Dates: start: 20130330

REACTIONS (2)
  - Overdose [Recovering/Resolving]
  - Inappropriate schedule of drug administration [Recovering/Resolving]
